FAERS Safety Report 4862911-2 (Version None)
Quarter: 2005Q4

REPORT INFORMATION
  Report Type: 
  Country: None (occurrence: None)
  Receive Date: 20051129
  Receipt Date: 20050902
  Transmission Date: 20060501
  Serious: No
  Sender: FDA-Public Use
  Company Number: WAES 0509USA01139

PATIENT
  Age: 64 Year
  Sex: Female

DRUGS (2)
  1. ZETIA [Suspect]
     Dosage: PO
     Route: 048
     Dates: start: 20040101
  2. ZETIA [Suspect]
     Dosage: DAILY
     Route: 065

REACTIONS (2)
  - DRUG ADMINISTRATION ERROR [None]
  - MYALGIA [None]
